FAERS Safety Report 8264662-3 (Version None)
Quarter: 2012Q2

REPORT INFORMATION
  Report Type: 
  Country: None (occurrence: None)
  Receive Date: 20120403
  Receipt Date: 20120320
  Transmission Date: 20120825
  Serious: Yes (Death, Hospitalization)
  Sender: FDA-Public Use
  Company Number: 2012ST000296

PATIENT
  Age: 18 Year
  Sex: Male
  Weight: 126.4 kg

DRUGS (8)
  1. ONCASPAR [Suspect]
     Indication: ACUTE LYMPHOCYTIC LEUKAEMIA
     Dosage: 2500 IU;X1;IV
     Route: 042
     Dates: start: 20120224, end: 20120302
  2. DOXORUBICIN HCL [Suspect]
     Indication: ACUTE LYMPHOCYTIC LEUKAEMIA
     Dosage: 60 MG/M**2;X1;IV
     Route: 042
     Dates: start: 20120224, end: 20120224
  3. VELCADE [Suspect]
     Indication: ACUTE LYMPHOCYTIC LEUKAEMIA
     Dosage: 1.3 MG/M**2; QD; IV
     Route: 042
     Dates: start: 20120224, end: 20120302
  4. VINCRISTINE [Suspect]
     Indication: ACUTE LYMPHOCYTIC LEUKAEMIA
     Dosage: 1.5 MG/M**2;QD;IV
     Route: 042
     Dates: start: 20120224, end: 20120302
  5. PREDNISONE TAB [Suspect]
     Indication: ACUTE LYMPHOCYTIC LEUKAEMIA
     Dosage: 20 MG/M**2;QD;PO
     Route: 048
     Dates: start: 20120224, end: 20120304
  6. CYTARABINE [Suspect]
     Indication: ACUTE LYMPHOCYTIC LEUKAEMIA
     Dosage: 70 MG;X1;INTH
     Route: 037
     Dates: start: 20120224
  7. HYDROCORTISONE [Suspect]
     Indication: ACUTE LYMPHOCYTIC LEUKAEMIA
  8. METHOTREXATE [Suspect]
     Indication: ACUTE LYMPHOCYTIC LEUKAEMIA
     Dosage: INTH
     Route: 037

REACTIONS (10)
  - SEPTIC SHOCK [None]
  - HYPONATRAEMIA [None]
  - METABOLIC ACIDOSIS [None]
  - URINE OUTPUT DECREASED [None]
  - WHITE BLOOD CELL COUNT DECREASED [None]
  - CAPILLARY LEAK SYNDROME [None]
  - HYPOTENSION [None]
  - CLOSTRIDIUM TEST POSITIVE [None]
  - ABDOMINAL PAIN [None]
  - PLATELET COUNT DECREASED [None]
